FAERS Safety Report 7307501-7 (Version None)
Quarter: 2011Q1

REPORT INFORMATION
  Report Type: 
  Country: None (occurrence: None)
  Receive Date: 20110223
  Receipt Date: 20110216
  Transmission Date: 20110831
  Serious: Yes (Other)
  Sender: FDA-Public Use
  Company Number: DK-BRISTOL-MYERS SQUIBB COMPANY-15433980

PATIENT
  Age: 36 Year
  Sex: Female

DRUGS (2)
  1. ABILIFY [Suspect]
     Dosage: 26JAN09;2.5MG,DISCONTINUED ON 04NOV09
     Dates: start: 20081106
  2. ESCITALOPRAM [Suspect]

REACTIONS (3)
  - AGITATION [None]
  - MANIA [None]
  - INITIAL INSOMNIA [None]
